FAERS Safety Report 6447397-9 (Version None)
Quarter: 2009Q4

REPORT INFORMATION
  Report Type: 
  Country: None (occurrence: None)
  Receive Date: 20091119
  Receipt Date: 20091112
  Transmission Date: 20100525
  Serious: Yes (Death, Hospitalization)
  Sender: FDA-Public Use
  Company Number: SK-ABBOTT-09P-260-0600124-00

PATIENT
  Sex: Female
  Weight: 45 kg

DRUGS (1)
  1. HUMIRA [Suspect]
     Indication: RHEUMATOID ARTHRITIS
     Route: 058
     Dates: start: 20090814, end: 20090914

REACTIONS (5)
  - CARDIAC FAILURE [None]
  - COMA SCALE ABNORMAL [None]
  - HYPOTENSION [None]
  - SEPSIS [None]
  - TACHYCARDIA [None]
